FAERS Safety Report 8430051-1 (Version None)
Quarter: 2012Q2

REPORT INFORMATION
  Report Type: 
  Country: None (occurrence: None)
  Receive Date: 20120612
  Receipt Date: 20120529
  Transmission Date: 20120825
  Serious: Yes (Hospitalization, Disabling, Other)
  Sender: FDA-Public Use
  Company Number: US-MYLANLABS-2009AC000177

PATIENT
  Age: 46 Year
  Sex: Female
  Weight: 104.33 kg

DRUGS (50)
  1. DIGOXIN [Suspect]
     Indication: CARDIAC DISORDER
     Dosage: DOSE UNIT:
     Route: 048
     Dates: start: 20001116, end: 20080401
  2. COREG [Concomitant]
  3. SERTRALINE HYDROCHLORIDE [Concomitant]
  4. AMOXICILLIN [Concomitant]
  5. KLOR-CON [Concomitant]
  6. QUINIDINE SULFATE [Concomitant]
  7. ACTOS [Concomitant]
  8. ATENOLOL [Concomitant]
  9. PROPOXYPHENE NAPSYLATE W/ ACETAMINOPHEN [Concomitant]
  10. METFORMIN HCL [Concomitant]
  11. GLIPIZIDE [Concomitant]
  12. DOXYCYCLINE [Concomitant]
  13. ZITHROMAX [Concomitant]
  14. METHYLPREDNISOLONE [Concomitant]
  15. FUROSEMIDE [Concomitant]
  16. PAROXETINE [Concomitant]
  17. VALTREX [Concomitant]
  18. MICARDIS [Concomitant]
  19. DEPO-PROVERA [Concomitant]
  20. SULFAMETHOXAZOLE [Concomitant]
  21. TEQUIN [Concomitant]
  22. ALPRAZOLAM [Concomitant]
  23. NAPROXEN [Concomitant]
  24. AZITHROMYCIN [Concomitant]
  25. AVELOX [Concomitant]
  26. ZESTRIL [Concomitant]
  27. OXYCODONE/ACETAMINOPHEN [Concomitant]
  28. ACETAMINOPHEN W/ CODEINE [Concomitant]
  29. TRAMADOL HCL [Concomitant]
  30. MAGNESIUM OXIDE [Concomitant]
  31. AVANDIA [Concomitant]
  32. INSPRA /01362602/ [Concomitant]
  33. HYDROCODONE [Concomitant]
  34. PREMARIN [Concomitant]
  35. CIPROFLOXACIN [Concomitant]
  36. LISINOPRIL [Concomitant]
  37. ZYRTEC [Concomitant]
  38. EPIPEN [Concomitant]
  39. POTASSIUM CHLORIDE [Concomitant]
  40. TOPAMAX [Concomitant]
  41. TIKOSYN [Concomitant]
  42. METRONIDAZOLE [Concomitant]
  43. PAXIL [Concomitant]
  44. ALLEGRA [Concomitant]
  45. MEDROXYPROGESTERONE [Concomitant]
  46. IMITREX [Concomitant]
  47. SPIRONOLACTONE [Concomitant]
  48. FEXOFENADINE [Concomitant]
  49. SKELAXIN [Concomitant]
  50. CEPHALEXIN [Concomitant]

REACTIONS (76)
  - PAIN [None]
  - HEADACHE [None]
  - TOXICITY TO VARIOUS AGENTS [None]
  - FEELING ABNORMAL [None]
  - IMPAIRED WORK ABILITY [None]
  - FATIGUE [None]
  - PANIC ATTACK [None]
  - NECK PAIN [None]
  - HEART RATE IRREGULAR [None]
  - RHINORRHOEA [None]
  - UPPER RESPIRATORY TRACT INFECTION [None]
  - ROAD TRAFFIC ACCIDENT [None]
  - MUSCULAR WEAKNESS [None]
  - FALL [None]
  - MITRAL VALVE INCOMPETENCE [None]
  - CATHETERISATION CARDIAC [None]
  - DYSURIA [None]
  - CARPAL TUNNEL SYNDROME [None]
  - EAR PAIN [None]
  - BLOOD PRESSURE DECREASED [None]
  - ORAL HERPES [None]
  - ARTERIOSCLEROSIS [None]
  - CARDIOMYOPATHY [None]
  - PRESYNCOPE [None]
  - ESSENTIAL HYPERTENSION [None]
  - AMENORRHOEA [None]
  - NEUROLOGICAL SYMPTOM [None]
  - EMOTIONAL DISTRESS [None]
  - HYPOTENSION [None]
  - MYOCARDIAL ISCHAEMIA [None]
  - DILATATION VENTRICULAR [None]
  - VENTRICULAR HYPERTROPHY [None]
  - TACHYARRHYTHMIA [None]
  - IMPLANTABLE DEFIBRILLATOR INSERTION [None]
  - CARDIAC FAILURE CONGESTIVE [None]
  - DEVICE FAILURE [None]
  - EAR INFECTION [None]
  - ILL-DEFINED DISORDER [None]
  - OROPHARYNGEAL PAIN [None]
  - DIZZINESS [None]
  - SYNCOPE [None]
  - MYALGIA [None]
  - CRYING [None]
  - PHARYNGITIS [None]
  - PLANTAR FASCIITIS [None]
  - ECONOMIC PROBLEM [None]
  - BLOOD PRESSURE INCREASED [None]
  - NASAL CONGESTION [None]
  - DEPRESSION [None]
  - PALPITATIONS [None]
  - EXTRASYSTOLES [None]
  - VENTRICULAR HYPOKINESIA [None]
  - TREATMENT NONCOMPLIANCE [None]
  - SLEEP APNOEA SYNDROME [None]
  - CHEST DISCOMFORT [None]
  - FLUSHING [None]
  - TYPE 2 DIABETES MELLITUS [None]
  - DIABETES MELLITUS [None]
  - CHEST PAIN [None]
  - VENTRICULAR TACHYCARDIA [None]
  - DIABETES MELLITUS INADEQUATE CONTROL [None]
  - ANGINA UNSTABLE [None]
  - HYPOAESTHESIA [None]
  - NEUROPATHY PERIPHERAL [None]
  - INJURY [None]
  - COUGH [None]
  - BLOOD GLUCOSE INCREASED [None]
  - MIGRAINE [None]
  - HYPERTENSION [None]
  - DYSPNOEA [None]
  - LEFT VENTRICULAR DYSFUNCTION [None]
  - VIRAEMIA [None]
  - ARTHRALGIA [None]
  - OBESITY [None]
  - ULNAR NEURITIS [None]
  - HOT FLUSH [None]
